FAERS Safety Report 9423127 (Version 7)
Quarter: 2014Q2

REPORT INFORMATION
  Report Type: Report from Study
  Country: AU (occurrence: AU)
  Receive Date: 20130726
  Receipt Date: 20140625
  Transmission Date: 20141212
  Serious: Yes (Hospitalization)
  Sender: FDA-Public Use
  Company Number: AU-ROCHE-1249279

PATIENT
  Age: 84 Year
  Sex: Male
  Weight: 84 kg

DRUGS (21)
  1. VEMURAFENIB [Suspect]
     Indication: MALIGNANT MELANOMA
     Route: 048
     Dates: start: 20130628, end: 20130713
  2. VEMURAFENIB [Suspect]
     Dosage: DOSE REDUCED
     Route: 048
     Dates: start: 20130725
  3. VEMURAFENIB [Suspect]
     Dosage: BID (TWICE A DAY)
     Route: 048
     Dates: start: 20130726
  4. METFORMIN HYDROCHLORIDE [Concomitant]
     Indication: TYPE 2 DIABETES MELLITUS
     Route: 048
     Dates: start: 200809
  5. MINAX [Concomitant]
     Indication: HYPERTENSION
     Route: 048
     Dates: start: 200011, end: 20130710
  6. NITRO (GLYCERYL TRINITRATE) [Concomitant]
     Indication: ANGINA PECTORIS
     Route: 065
     Dates: start: 201003, end: 20130926
  7. VOLTAREN [Concomitant]
     Indication: PAIN
     Route: 048
     Dates: start: 201208, end: 20130920
  8. ELEVAL [Concomitant]
     Indication: DEPRESSION
     Route: 048
     Dates: start: 200602
  9. PLAVIX [Concomitant]
     Indication: THROMBOSIS PROPHYLAXIS
     Route: 048
     Dates: start: 200804, end: 20130920
  10. LOPERAMIDE HYDROCHLORIDE [Concomitant]
     Indication: DIARRHOEA
     Route: 048
     Dates: start: 20130702, end: 20130702
  11. NORMAL SALINE [Concomitant]
     Indication: BLOOD CREATININE INCREASED
     Route: 042
     Dates: start: 20130711, end: 20130711
  12. NORMAL SALINE [Concomitant]
     Indication: HYPOTENSION
     Route: 042
     Dates: start: 20130715, end: 20130715
  13. HEPARIN SODIUM [Concomitant]
     Indication: PROPHYLAXIS
     Route: 058
     Dates: start: 20130715, end: 20130718
  14. COLCHICINE [Concomitant]
     Indication: GOUT
     Route: 048
     Dates: start: 20130627, end: 20130630
  15. COLCHICINE [Concomitant]
     Route: 048
     Dates: start: 20130626, end: 20130630
  16. NEXIUM [Concomitant]
     Route: 048
     Dates: start: 201310
  17. ALLOPURINOL [Concomitant]
     Indication: PROPHYLAXIS
     Route: 048
     Dates: start: 201310
  18. ZOLOFT [Concomitant]
     Indication: DEPRESSION
     Route: 048
     Dates: start: 200602
  19. ATORVASTATIN [Concomitant]
     Indication: HYPERCHOLESTEROLAEMIA
     Route: 048
     Dates: start: 199908
  20. COBIMETINIB [Suspect]
     Indication: MALIGNANT MELANOMA
     Route: 048
     Dates: start: 20130714
  21. COBIMETINIB [Suspect]
     Dosage: DOSE REDUCED
     Route: 048

REACTIONS (3)
  - Renal impairment [Recovered/Resolved]
  - Vomiting [Recovered/Resolved]
  - Dehydration [Recovered/Resolved]
